FAERS Safety Report 4303971-7 (Version None)
Quarter: 2004Q1

REPORT INFORMATION
  Report Type: 
  Country: None (occurrence: None)
  Receive Date: 20040225
  Receipt Date: 20040219
  Transmission Date: 20041129
  Serious: Yes (Hospitalization)
  Sender: FDA-Public Use
  Company Number: FR-ROCHE-359139

PATIENT
  Age: 27 Year
  Sex: Female

DRUGS (2)
  1. LOXEN [Suspect]
     Indication: DRUG USE FOR UNKNOWN INDICATION
     Route: 048
     Dates: start: 20021130, end: 20021203
  2. SPASFON [Concomitant]

REACTIONS (8)
  - ACUTE RESPIRATORY DISTRESS SYNDROME [None]
  - C-REACTIVE PROTEIN INCREASED [None]
  - COMPLICATIONS OF MATERNAL EXPOSURE TO THERAPEUTIC DRUGS [None]
  - LUNG DISORDER [None]
  - PERICARDIAL EFFUSION [None]
  - PULMONARY OEDEMA [None]
  - RESPIRATORY ALKALOSIS [None]
  - WHITE BLOOD CELL COUNT INCREASED [None]
